FAERS Safety Report 4990000-5 (Version None)
Quarter: 2006Q2

REPORT INFORMATION
  Report Type: 
  Country: None (occurrence: None)
  Receive Date: 20060427
  Receipt Date: 20060413
  Transmission Date: 20061013
  Serious: Yes (Hospitalization)
  Sender: FDA-Public Use
  Company Number: S06-FRA-01578-01

PATIENT
  Age: 65 Year
  Sex: Male

DRUGS (5)
  1. MEMANTINE HCL [Suspect]
     Indication: DEMENTIA ALZHEIMER'S TYPE
     Dosage: 10 MG BID PO
     Route: 048
  2. RISPERDAL [Concomitant]
  3. EXELON [Concomitant]
  4. ATENOLOL [Concomitant]
  5. TIAPRIDAL (TIAPRIDE) [Concomitant]

REACTIONS (7)
  - ATRIOVENTRICULAR BLOCK THIRD DEGREE [None]
  - BLOOD AMYLASE INCREASED [None]
  - BRADYCARDIA [None]
  - HYPOTHERMIA [None]
  - LIPASE INCREASED [None]
  - LUNG DISORDER [None]
  - OLIGURIA [None]
